FAERS Safety Report 6697342-6 (Version None)
Quarter: 2010Q2

REPORT INFORMATION
  Report Type: 
  Country: None (occurrence: None)
  Receive Date: 20100426
  Receipt Date: 20100416
  Transmission Date: 20101027
  Serious: Yes (Other)
  Sender: FDA-Public Use
  Company Number: US-PFIZER INC-2010048979

PATIENT
  Sex: Female

DRUGS (14)
  1. LIPITOR [Suspect]
     Dosage: UNK
  2. GLIPIZIDE [Suspect]
     Dosage: UNK
  3. METFORMIN HCL [Suspect]
     Dosage: UNK
  4. METOPROLOL [Suspect]
     Dosage: UNK
  5. PLAVIX [Suspect]
     Indication: MYOCARDIAL INFARCTION
     Dosage: 75 MG, DAILY
     Route: 048
     Dates: start: 19991201
  6. PLAVIX [Suspect]
     Indication: STENT PLACEMENT
  7. VITAMIN D [Suspect]
     Dosage: UNK
  8. POTASSIUM [Suspect]
     Dosage: UNK
  9. ISOSORBIDE [Suspect]
     Dosage: UNK
  10. ETODOLAC [Suspect]
     Dosage: UNK
  11. CARVEDILOL [Suspect]
     Dosage: UNK
  12. PRILOSEC [Suspect]
     Dosage: UNK
  13. ACETAMINOPHEN AND HYDROCODONE BITARTRATE [Suspect]
     Dosage: UNK
  14. DIPHENHYDRAMINE [Suspect]
     Dosage: UNK

REACTIONS (9)
  - ABDOMINAL PAIN UPPER [None]
  - CHEST PAIN [None]
  - DIARRHOEA [None]
  - DIZZINESS [None]
  - DYSPNOEA [None]
  - INSOMNIA [None]
  - NAUSEA [None]
  - PAIN IN EXTREMITY [None]
  - SEPSIS [None]
